FAERS Safety Report 7562373-0 (Version None)
Quarter: 2011Q2

REPORT INFORMATION
  Report Type: 
  Country: None (occurrence: None)
  Receive Date: 20110622
  Receipt Date: 20110609
  Transmission Date: 20111010
  Serious: Yes (Other)
  Sender: FDA-Public Use
  Company Number: US-ELI_LILLY_AND_COMPANY-US201104006754

PATIENT
  Sex: Female

DRUGS (9)
  1. FORTEO [Suspect]
     Indication: OSTEOPOROSIS
     Dosage: 20 UG, QD
     Route: 065
  2. ACIDOPHILUS [Concomitant]
  3. ACTONEL [Concomitant]
     Route: 065
  4. FORTEO [Suspect]
     Dosage: 20 UG, QD
     Route: 065
  5. POTASSIUM [Concomitant]
  6. CALCIUM +VIT D [Concomitant]
  7. STOOL SOFTENER [Concomitant]
  8. PULMICORT [Concomitant]
  9. DOXYCYCLINE [Concomitant]
     Dosage: UNK, OTHER

REACTIONS (4)
  - BALANCE DISORDER [None]
  - ACOUSTIC NEUROMA [None]
  - ALOPECIA [None]
  - ARTHRITIS [None]
